FAERS Safety Report 4333659-8 (Version None)
Quarter: 2004Q2

REPORT INFORMATION
  Report Type: 
  Country: None (occurrence: None)
  Receive Date: 20040405
  Receipt Date: 20040405
  Transmission Date: 20050107
  Serious: Yes (Life-Threatening)
  Sender: FDA-Public Use
  Company Number: None

PATIENT
  Age: 57 Year
  Sex: Female
  Weight: 72 kg

DRUGS (1)
  1. ELLENCE [Suspect]
     Indication: BREAST CANCER
     Dosage: 186 MG IV Q 21 DAYS
     Route: 042

REACTIONS (1)
  - EJECTION FRACTION DECREASED [None]
